FAERS Safety Report 9509550 (Version 1)
Quarter: 2013Q3

REPORT INFORMATION
  Report Type: Spontaneous
  Country: US (occurrence: US)
  Receive Date: 20130909
  Receipt Date: 20130909
  Transmission Date: 20140515
  Serious: No
  Sender: FDA-Public Use
  Company Number: US-BRISTOL-MYERS SQUIBB COMPANY-17248030

PATIENT
  Age: 33 Year
  Sex: Female
  Weight: 61.22 kg

DRUGS (3)
  1. ABILIFY [Suspect]
     Indication: BIPOLAR DISORDER
  2. LAMICTAL [Suspect]
     Indication: BIPOLAR DISORDER
  3. ATIVAN [Concomitant]
     Indication: ANXIETY

REACTIONS (1)
  - Breast feeding [Unknown]
